FAERS Safety Report 6458975-5 (Version None)
Quarter: 2009Q4

REPORT INFORMATION
  Report Type: 
  Country: None (occurrence: None)
  Receive Date: 20091127
  Receipt Date: 20091116
  Transmission Date: 20100525
  Serious: Yes (Hospitalization)
  Sender: FDA-Public Use
  Company Number: MY-ELI_LILLY_AND_COMPANY-MY200910007021

PATIENT
  Age: 43 Year
  Sex: Female

DRUGS (9)
  1. ZYPREXA [Suspect]
     Indication: SCHIZOPHRENIA
     Dosage: UNK, UNKNOWN
     Route: 065
  2. ZYPREXA [Suspect]
     Dosage: 30 MG, DAILY (1/D)
     Route: 065
     Dates: end: 20091001
  3. ZYPREXA [Suspect]
     Dosage: 20 MG, DAILY (1/D)
     Route: 065
     Dates: start: 20091001
  4. METFORMIN HCL [Concomitant]
     Dosage: 500 MG, 2/D
     Route: 065
  5. DAONIL [Concomitant]
     Dosage: 5 MG, 2/D
     Route: 065
  6. ARTANE [Concomitant]
     Dosage: 2 MG, 3/D
     Route: 065
  7. LORAZEPAM [Concomitant]
     Dosage: 1 MG, DAILY (1/D)
     Route: 051
  8. LOVASTATIN [Concomitant]
     Dosage: 20 MG, EACH EVENING
  9. PROZAC [Concomitant]
     Dosage: 60 MG, EACH MORNING
     Route: 065

REACTIONS (3)
  - DRUG INEFFECTIVE [None]
  - HOSPITALISATION [None]
  - OVERDOSE [None]
